FAERS Safety Report 13229798 (Version 1)
Quarter: 2017Q1

REPORT INFORMATION
  Report Type: Spontaneous
  Country: US (occurrence: US)
  Receive Date: 20170214
  Receipt Date: 20170214
  Transmission Date: 20170428
  Serious: No
  Sender: FDA-Public Use
  Company Number: US-TEVA-732606USA

PATIENT
  Age: 17 Year
  Sex: Male

DRUGS (1)
  1. PROPYLTHIOURACIL. [Suspect]
     Active Substance: PROPYLTHIOURACIL
     Route: 065
     Dates: start: 201602

REACTIONS (1)
  - Blood immunoglobulin A increased [Unknown]

NARRATIVE: CASE EVENT DATE: 201701
